FAERS Safety Report 4513435-3 (Version None)
Quarter: 2004Q4

REPORT INFORMATION
  Report Type: 
  Country: None (occurrence: None)
  Receive Date: 20041130
  Receipt Date: 20041005
  Transmission Date: 20050328
  Serious: Yes (Other)
  Sender: FDA-Public Use
  Company Number: US-BRISTOL-MYERS SQUIBB COMPANY-12724423

PATIENT
  Age: 5 Decade
  Sex: Female

DRUGS (1)
  1. ERBITUX [Suspect]
     Indication: COLON CANCER STAGE IV
     Dates: start: 20040401, end: 20040401

REACTIONS (2)
  - ASTHENIA [None]
  - RASH [None]
